FAERS Safety Report 19474255 (Version 1)
Quarter: 2021Q2

REPORT INFORMATION
  Report Type: Spontaneous
  Country: US (occurrence: US)
  Receive Date: 20210630
  Receipt Date: 20210630
  Transmission Date: 20210717
  Serious: No
  Sender: FDA-Public Use
  Company Number: US-JNJFOC-20210632294

PATIENT
  Age: 28 Year
  Sex: Female

DRUGS (2)
  1. UPTRAVI [Suspect]
     Active Substance: SELEXIPAG
     Indication: PRODUCT USED FOR UNKNOWN INDICATION
     Route: 048
  2. TREPROSTINIL SODIUM [Suspect]
     Active Substance: TREPROSTINIL SODIUM
     Indication: PULMONARY ARTERIAL HYPERTENSION
     Dosage: THE CURRENT DOSE WAS REPORTED AS 0.058 G/KG AT A RATE OF 39 ML/24HR, CONTINUOUS VIA INTRAVENOUS (IV
     Route: 042
     Dates: start: 20200624

REACTIONS (1)
  - Fatigue [Unknown]
